FAERS Safety Report 7570092-X (Version None)
Quarter: 2011Q2

REPORT INFORMATION
  Report Type: 
  Country: None (occurrence: None)
  Receive Date: 20110624
  Receipt Date: 20110615
  Transmission Date: 20111010
  Serious: Yes (Death)
  Sender: FDA-Public Use
  Company Number: IN-JNJFOC-20110609882

PATIENT
  Age: 21 Year
  Sex: Male

DRUGS (3)
  1. LITHIUM CARBONATE [Interacting]
     Indication: BIPOLAR DISORDER
     Route: 065
  2. TRIHEXYPHENIDYL HCL [Suspect]
     Indication: BIPOLAR DISORDER
     Route: 065
  3. HALOPERIDOL [Suspect]
     Indication: BIPOLAR DISORDER
     Route: 065

REACTIONS (6)
  - RESPIRATORY FAILURE [None]
  - DRUG INTERACTION [None]
  - TOXICITY TO VARIOUS AGENTS [None]
  - CARDIAC ARREST [None]
  - SINUS BRADYCARDIA [None]
  - COMA [None]
